FAERS Safety Report 16667075 (Version 1)
Quarter: 2019Q3

REPORT INFORMATION
  Report Type: Spontaneous
  Country: PT (occurrence: PT)
  Receive Date: 20190805
  Receipt Date: 20190805
  Transmission Date: 20191004
  Serious: Yes (Hospitalization, Other)
  Sender: FDA-Public Use
  Company Number: PT-AXELLIA-002617

PATIENT
  Age: 37 Year
  Sex: Female

DRUGS (4)
  1. MEROPENEM. [Suspect]
     Active Substance: MEROPENEM
     Indication: PRODUCT USED FOR UNKNOWN INDICATION
  2. VANCOMYCIN [Suspect]
     Active Substance: VANCOMYCIN
     Indication: PRODUCT USED FOR UNKNOWN INDICATION
  3. NOREPINEPHRINE. [Suspect]
     Active Substance: NOREPINEPHRINE
     Indication: PRODUCT USED FOR UNKNOWN INDICATION
  4. AMOXICILLIN/CLAVULANIC ACID [Suspect]
     Active Substance: AMOXICILLIN\CLAVULANIC ACID
     Indication: MASTITIS

REACTIONS (9)
  - Procedural hypotension [Recovered/Resolved]
  - Dilatation ventricular [Recovering/Resolving]
  - Peripartum cardiomyopathy [Recovered/Resolved]
  - Hypotension [Unknown]
  - Maternal exposure during breast feeding [Unknown]
  - Metabolic acidosis [Recovered/Resolved]
  - Sepsis [Recovered/Resolved]
  - Vomiting [Recovered/Resolved]
  - Mitral valve incompetence [Recovering/Resolving]
